FAERS Safety Report 19674930 (Version 1)
Quarter: 2021Q3

REPORT INFORMATION
  Report Type: Spontaneous
  Country: US (occurrence: US)
  Receive Date: 20210809
  Receipt Date: 20210809
  Transmission Date: 20211014
  Serious: Yes (Hospitalization)
  Sender: FDA-Public Use
  Company Number: None

PATIENT
  Age: 59 Year
  Sex: Male
  Weight: 78.4 kg

DRUGS (2)
  1. AMIODARONE [Suspect]
     Active Substance: AMIODARONE
     Indication: SUPRAVENTRICULAR TACHYCARDIA
     Route: 048
     Dates: start: 20200717, end: 20210531
  2. CARVEDILOL. [Concomitant]
     Active Substance: CARVEDILOL
     Dates: start: 20200709, end: 20210531

REACTIONS (4)
  - Vision blurred [None]
  - Bradycardia [None]
  - Presyncope [None]
  - Chest pain [None]

NARRATIVE: CASE EVENT DATE: 20210531
